FAERS Safety Report 4844333-3 (Version None)
Quarter: 2005Q4

REPORT INFORMATION
  Report Type: 
  Country: None (occurrence: None)
  Receive Date: 20051202
  Receipt Date: 20050908
  Transmission Date: 20060501
  Serious: Yes (Death, Hospitalization)
  Sender: FDA-Public Use
  Company Number: US-MERCK-0509USA01055

PATIENT
  Age: 81 Year
  Sex: Female
  Weight: 50 kg

DRUGS (20)
  1. VIOXX [Suspect]
     Indication: ARTHRITIS
     Route: 048
     Dates: start: 20000911, end: 20020507
  2. ALLEGRA [Concomitant]
     Indication: HYPERSENSITIVITY
     Route: 065
  3. PREVACID [Concomitant]
     Indication: GASTRIC DISORDER
     Route: 065
  4. NORVASC [Concomitant]
     Indication: HYPERTENSION
     Route: 065
     Dates: start: 20000110, end: 20030203
  5. DITROPAN [Concomitant]
     Indication: HYPERTONIC BLADDER
     Route: 065
  6. REGLAN [Concomitant]
     Indication: GASTROOESOPHAGEAL REFLUX DISEASE
     Route: 065
  7. MIACALCIN [Concomitant]
     Indication: OSTEOPOROSIS POSTMENOPAUSAL
     Route: 065
  8. PROTONIX [Concomitant]
     Route: 065
  9. THEOPHYLLINE [Concomitant]
     Route: 065
  10. KAY CIEL DURA-TABS [Concomitant]
     Route: 065
  11. ZANTAC [Concomitant]
     Indication: GASTRIC DISORDER
     Route: 065
  12. PIPERACILLIN [Concomitant]
     Route: 065
  13. TAZOBACTAM [Concomitant]
     Route: 065
  14. DEMEROL [Concomitant]
     Route: 065
  15. ATIVAN [Concomitant]
     Indication: ANXIETY
     Route: 065
  16. VERSED [Concomitant]
     Route: 065
  17. LESCOL [Concomitant]
     Indication: BLOOD CHOLESTEROL INCREASED
     Route: 065
     Dates: start: 19950101, end: 20001030
  18. PATANOL [Concomitant]
     Indication: CONJUNCTIVITIS ALLERGIC
     Route: 065
  19. ACETASOL [Concomitant]
     Indication: EAR INFECTION
     Route: 065
  20. ASPIRIN [Concomitant]
     Indication: CARDIAC DISORDER
     Route: 065
     Dates: end: 20030821

REACTIONS (40)
  - ABDOMINAL SEPSIS [None]
  - ACUTE ABDOMEN [None]
  - ACUTE RESPIRATORY FAILURE [None]
  - AORTIC VALVE SCLEROSIS [None]
  - ASCITES [None]
  - BACK PAIN [None]
  - BALANCE DISORDER [None]
  - BRONCHIAL OBSTRUCTION [None]
  - CARDIAC FAILURE CONGESTIVE [None]
  - CAROTID ARTERY DISEASE [None]
  - CEREBRAL ATROPHY [None]
  - CEREBRAL INFARCTION [None]
  - CEREBROVASCULAR ACCIDENT [None]
  - CERUMEN IMPACTION [None]
  - CHEYNE-STOKES RESPIRATION [None]
  - COLLAPSE OF LUNG [None]
  - CONVULSION [None]
  - DEAFNESS NEUROSENSORY [None]
  - DEEP VEIN THROMBOSIS [None]
  - DERMATITIS [None]
  - DIVERTICULUM DUODENAL [None]
  - ERYTHEMA [None]
  - FALL [None]
  - GASTRITIS [None]
  - GASTROOESOPHAGEAL REFLUX DISEASE [None]
  - GRAND MAL CONVULSION [None]
  - HYPOTHYROIDISM [None]
  - INTESTINAL INFARCTION [None]
  - MENTAL STATUS CHANGES [None]
  - MITRAL VALVE SCLEROSIS [None]
  - MYOCARDIAL INFARCTION [None]
  - NON-CARDIAC CHEST PAIN [None]
  - PERITONITIS [None]
  - PULMONARY HYPERTENSION [None]
  - RESPIRATORY FAILURE [None]
  - ROAD TRAFFIC ACCIDENT [None]
  - SEPTIC SHOCK [None]
  - TRICUSPID VALVE INCOMPETENCE [None]
  - URINARY TRACT INFECTION [None]
  - VERTIGO [None]
